FAERS Safety Report 10098043 (Version 1)
Quarter: 2014Q2

REPORT INFORMATION
  Report Type: Spontaneous
  Country: US (occurrence: US)
  Receive Date: 20140423
  Receipt Date: 20140423
  Transmission Date: 20141212
  Serious: Yes (Other)
  Sender: FDA-Public Use
  Company Number: US-AMGEN INC.-USASP2014028791

PATIENT
  Age: 62 Year
  Sex: Male
  Weight: 117 kg

DRUGS (7)
  1. ENBREL [Suspect]
     Indication: PRODUCT USED FOR UNKNOWN INDICATION
     Dosage: 50 MG, QWK
     Route: 058
  2. METHOTREXATE [Concomitant]
     Dosage: 2.5 MG, UNK
  3. LEFLUNOMIDE [Concomitant]
     Dosage: 10 MG, UNK
  4. BISOPROLOL FUMARATE [Concomitant]
     Dosage: 10 MG, UNK
  5. PRAVASTATIN [Concomitant]
     Dosage: 80 MG, UNK
  6. NEXIUM                             /01479302/ [Concomitant]
     Dosage: 40 MG, UNK
  7. ASA [Concomitant]
     Dosage: 81 MG, UNK

REACTIONS (2)
  - Rheumatoid arthritis [Unknown]
  - Abdominal discomfort [Unknown]
